FAERS Safety Report 9062084 (Version 1)
Quarter: 2013Q1

REPORT INFORMATION
  Report Type: Spontaneous
  Country: US (occurrence: US)
  Receive Date: 20130204
  Receipt Date: 20130204
  Transmission Date: 20140127
  Serious: Yes (Hospitalization)
  Sender: FDA-Public Use
  Company Number: PHEH2013US002630

PATIENT
  Age: 67 Year
  Sex: Male

DRUGS (4)
  1. EXELON PATCH [Suspect]
     Indication: DEMENTIA ALZHEIMER^S TYPE
     Dosage: 4.6 MG, DAILY
     Route: 062
     Dates: start: 20110801
  2. ARICEPT [Concomitant]
  3. LEXAPRO [Concomitant]
  4. WELLBUTRIN [Concomitant]

REACTIONS (3)
  - Herpes zoster [Recovered/Resolved]
  - Cerebrovascular accident [Recovered/Resolved]
  - Convulsion [Recovered/Resolved]
